FAERS Safety Report 4711539-3 (Version None)
Quarter: 2005Q3

REPORT INFORMATION
  Report Type: 
  Country: None (occurrence: None)
  Receive Date: 20050708
  Receipt Date: 20050708
  Transmission Date: 20060218
  Serious: Yes (Life-Threatening)
  Sender: FDA-Public Use
  Company Number: None

PATIENT
  Age: 67 Year
  Sex: Female
  Weight: 68.4932 kg

DRUGS (5)
  1. ENABLEX [Suspect]
     Indication: HYPERTONIC BLADDER
     Dosage: ONE DAILY  ORAL
     Route: 048
     Dates: start: 20050628, end: 20050707
  2. ENABLEX [Suspect]
     Indication: URGE INCONTINENCE
     Dosage: ONE DAILY  ORAL
     Route: 048
     Dates: start: 20050628, end: 20050707
  3. CLIMARA [Concomitant]
  4. ACTONEL [Concomitant]
  5. DIOVAN [Concomitant]

REACTIONS (2)
  - ANGIONEUROTIC OEDEMA [None]
  - OESOPHAGEAL DISORDER [None]
